FAERS Safety Report 5794428-5 (Version None)
Quarter: 2008Q2

REPORT INFORMATION
  Report Type: 
  Country: None (occurrence: None)
  Receive Date: 20080630
  Receipt Date: 20080625
  Transmission Date: 20081010
  Serious: Yes (Other)
  Sender: FDA-Public Use
  Company Number: FR-RANBAXY-2008RR-15837

PATIENT

DRUGS (3)
  1. MINOCYCLINE HCL [Suspect]
     Indication: ACNE
     Dosage: UNK
  2. FLUOXETINE [Concomitant]
     Indication: DEPRESSIVE SYMPTOM
  3. BROMAZEPAM [Concomitant]
     Indication: DEPRESSIVE SYMPTOM

REACTIONS (4)
  - ANTINEUTROPHIL CYTOPLASMIC ANTIBODY [None]
  - MENORRHAGIA [None]
  - MICROCYTIC ANAEMIA [None]
  - POLYARTERITIS NODOSA [None]
